FAERS Safety Report 6786206-5 (Version None)
Quarter: 2010Q2

REPORT INFORMATION
  Report Type: 
  Country: None (occurrence: None)
  Receive Date: 20100623
  Receipt Date: 20100622
  Transmission Date: 20101027
  Serious: No
  Sender: FDA-Public Use
  Company Number: US-ROXANE LABORATORIES, INC.-2010-RO-00588RO

PATIENT
  Sex: Female

DRUGS (3)
  1. FLUTICASONE [Suspect]
     Indication: HYPERSENSITIVITY
     Route: 055
  2. HIGH BLOOD PRESSURE MEDICATION [Concomitant]
     Indication: HYPERTENSION
  3. BIRTH CONTROL [Concomitant]
     Indication: CONTRACEPTION

REACTIONS (3)
  - DRUG INEFFECTIVE [None]
  - HEADACHE [None]
  - SINUS HEADACHE [None]
